FAERS Safety Report 22614951 (Version 1)
Quarter: 2023Q2

REPORT INFORMATION
  Report Type: Spontaneous
  Country: CN (occurrence: CN)
  Receive Date: 20230619
  Receipt Date: 20230619
  Transmission Date: 20230722
  Serious: Yes (Life-Threatening, Hospitalization, Other)
  Sender: FDA-Public Use
  Company Number: CN-AUROBINDO-AUR-APL-2023-043051

PATIENT
  Age: 16 Year
  Sex: Male
  Weight: 77 kg

DRUGS (9)
  1. EVOMELA [Suspect]
     Active Substance: MELPHALAN HYDROCHLORIDE
     Indication: Lymphoma
     Dosage: 250 MILLIGRAM, ONCE A DAY(PUMP INJECTION)
     Route: 042
     Dates: start: 20230313, end: 20230320
  2. EVOMELA [Suspect]
     Active Substance: MELPHALAN HYDROCHLORIDE
     Indication: Stem cell transplant
  3. CARMUSTINE [Suspect]
     Active Substance: CARMUSTINE
     Indication: Lymphoma
     Dosage: 570 MILLIGRAM, ONCE A DAY(PUMP INJECTION)
     Route: 065
     Dates: start: 20230313, end: 20230315
  4. CARMUSTINE [Suspect]
     Active Substance: CARMUSTINE
     Indication: Stem cell transplant
  5. CYTARABINE [Suspect]
     Active Substance: CYTARABINE
     Indication: Lymphoma
     Dosage: 380 MILLIGRAM, ONCE A DAY(VIA PUMP INJECTION)
     Route: 065
     Dates: start: 20230313, end: 20230319
  6. CYTARABINE [Suspect]
     Active Substance: CYTARABINE
     Indication: Stem cell transplant
  7. ETOPOSIDE [Suspect]
     Active Substance: ETOPOSIDE
     Indication: Lymphoma
     Dosage: 230 MILLIGRAM, ONCE A DAY(PUMP INJECTION)
     Route: 042
     Dates: start: 20230313, end: 20230315
  8. ETOPOSIDE [Suspect]
     Active Substance: ETOPOSIDE
     Indication: Stem cell transplant
  9. GANCICLOVIR [Concomitant]
     Active Substance: GANCICLOVIR
     Indication: Chemotherapy
     Dosage: 0.4 GRAM, ONCE A DAY
     Route: 065
     Dates: start: 20230313

REACTIONS (3)
  - Agranulocytosis [Recovering/Resolving]
  - Thrombocytopenia [Recovering/Resolving]
  - Off label use [Unknown]

NARRATIVE: CASE EVENT DATE: 20230313
